FAERS Safety Report 15928320 (Version 2)
Quarter: 2019Q2

REPORT INFORMATION
  Report Type: Report from Study
  Country: CA (occurrence: CA)
  Receive Date: 20190206
  Receipt Date: 20190416
  Transmission Date: 20190711
  Serious: Yes (Other)
  Sender: FDA-Public Use
  Company Number: CA-JNJFOC-20190141296

PATIENT
  Age: 65 Year
  Sex: Male
  Weight: 119 kg

DRUGS (14)
  1. PENTASA [Concomitant]
     Active Substance: MESALAMINE
     Dosage: 4 TABLETS TWICE A DAY
  2. DOCUSATE SODIUM. [Concomitant]
     Active Substance: DOCUSATE SODIUM
     Dosage: 2 CAPSULES TWICE A DAY
  3. SEEBRI BREEZHALER [Concomitant]
     Active Substance: GLYCOPYRROLATE
     Dosage: ONE INHALATION ONCE A DAY
  4. COLCHICIN [Concomitant]
     Active Substance: COLCHICINE
     Dosage: ONE TABLET ONCE A DAY
  5. STELARA [Suspect]
     Active Substance: USTEKINUMAB
     Indication: CROHN^S DISEASE
     Route: 042
     Dates: start: 20170714
  6. ATIVAN [Concomitant]
     Active Substance: LORAZEPAM
     Dosage: 0.5 TO 1 TABLET ONCE A DAY AT BEDTIMES AS NEED
  7. FENOFIBRATE MICRO [Concomitant]
     Active Substance: FENOFIBRATE
     Dosage: ONE CAPSULE ONCE A DAY
  8. JAMP ASA [Concomitant]
     Active Substance: ASPIRIN
     Dosage: 1 TABLET ONCE A DAY
  9. AMLODIPINE [Concomitant]
     Active Substance: AMLODIPINE BESYLATE
     Dosage: 1 TABLET ONCE A DAY
  10. EURO D [Concomitant]
     Dosage: ONE TABLET ONCE A WEEK
  11. SALBUTAMOL TEVA [Concomitant]
     Active Substance: ALBUTEROL
     Dosage: 2 INHALATIONS4 TIMES A DAY AS NEEDED MAX 8 PER DAY
  12. PANTOPRAZOLE SODIUM. [Concomitant]
     Active Substance: PANTOPRAZOLE SODIUM
     Dosage: ONE TABLET ONCE A DAY
  13. COBALAMIN [Concomitant]
     Active Substance: COBALAMIN
     Dosage: INJECTION 1ML ONCE A MONTH
  14. APO FUROSEMIDE [Concomitant]
     Active Substance: FUROSEMIDE
     Dosage: 1 TO 2 TABLETS ONCE A DAY

REACTIONS (1)
  - Lower respiratory tract infection [Recovered/Resolved]

NARRATIVE: CASE EVENT DATE: 20190116
